FAERS Safety Report 7469981-6 (Version None)
Quarter: 2011Q2

REPORT INFORMATION
  Report Type: 
  Country: None (occurrence: None)
  Receive Date: 20110510
  Receipt Date: 20110502
  Transmission Date: 20111010
  Serious: Yes (Other)
  Sender: FDA-Public Use
  Company Number: FI-ROCHE-774136

PATIENT
  Age: 62 Year
  Sex: Male

DRUGS (4)
  1. LEUCOVORIN CALCIUM [Concomitant]
     Dates: start: 20071001
  2. AVASTIN [Suspect]
     Dosage: DOSAGE, FREQUENCY NOT REPORTED
     Route: 065
     Dates: start: 20071001, end: 20110401
  3. FLUOROURACIL [Concomitant]
     Dates: start: 20071001
  4. OXALIPLATIN [Concomitant]
     Dates: start: 20071001

REACTIONS (2)
  - RENAL INFARCT [None]
  - HYDRONEPHROSIS [None]
